FAERS Safety Report 4994976-1 (Version None)
Quarter: 2006Q2

REPORT INFORMATION
  Report Type: 
  Country: None (occurrence: None)
  Receive Date: 20060508
  Receipt Date: 20060426
  Transmission Date: 20061013
  Serious: Yes (Hospitalization)
  Sender: FDA-Public Use
  Company Number: FR-GILEAD-2006-0009508

PATIENT
  Sex: Male
  Weight: 59 kg

DRUGS (4)
  1. VIREAD [Suspect]
     Route: 048
     Dates: start: 20051205, end: 20060207
  2. EPIVIR [Suspect]
     Route: 048
     Dates: start: 20051205, end: 20060207
  3. VIRAMUNE [Suspect]
     Route: 048
     Dates: start: 20051205, end: 20060207
  4. BACTRIM DS [Concomitant]
     Route: 048
     Dates: start: 20051205

REACTIONS (4)
  - ASTHENIA [None]
  - DYSPNOEA [None]
  - HEPATITIS [None]
  - HEPATOMEGALY [None]
